FAERS Safety Report 15275443 (Version 1)
Quarter: 2018Q3

REPORT INFORMATION
  Report Type: Spontaneous
  Country: CA (occurrence: CA)
  Receive Date: 20180814
  Receipt Date: 20180814
  Transmission Date: 20181010
  Serious: Yes (Other)
  Sender: FDA-Public Use
  Company Number: CA-BAYER-2018-148086

PATIENT
  Age: 31 Year
  Sex: Female

DRUGS (1)
  1. JAYDESS [Suspect]
     Active Substance: LEVONORGESTREL

REACTIONS (3)
  - Balance disorder [None]
  - Dysarthria [Not Recovered/Not Resolved]
  - Dry eye [Not Recovered/Not Resolved]
